FAERS Safety Report 25328109 (Version 1)
Quarter: 2025Q2

REPORT INFORMATION
  Report Type: Spontaneous
  Country: US (occurrence: US)
  Receive Date: 20250518
  Receipt Date: 20250518
  Transmission Date: 20250716
  Serious: No
  Sender: AUROBINDO
  Company Number: US-AUROBINDO-AUR-APL-2024-036409

PATIENT
  Age: 88 Year
  Sex: Female
  Weight: 64.41 kg

DRUGS (1)
  1. OLOPATADINE HYDROCHLORIDE [Suspect]
     Active Substance: OLOPATADINE HYDROCHLORIDE
     Indication: Eye irritation
     Dosage: UNK, ONCE A DAY
     Route: 065

REACTIONS (2)
  - Product use complaint [Unknown]
  - Product packaging quantity issue [Unknown]
